FAERS Safety Report 23393641 (Version 1)
Quarter: 2024Q1

REPORT INFORMATION
  Report Type: Spontaneous
  Country: US (occurrence: None)
  Receive Date: 20240111
  Receipt Date: 20240111
  Transmission Date: 20240410
  Serious: Yes (Hospitalization)
  Sender: FDA-Public Use
  Company Number: None

PATIENT
  Sex: Female

DRUGS (3)
  1. ZARXIO [Suspect]
     Active Substance: FILGRASTIM-SNDZ
     Indication: Agranulocytosis
     Dosage: OTHER FREQUENCY : D 2,3,  9-13 Q21 D;?
     Route: 058
     Dates: start: 202312
  2. ZARXIO [Suspect]
     Active Substance: FILGRASTIM-SNDZ
     Indication: Chemotherapy
  3. ZARXIO [Suspect]
     Active Substance: FILGRASTIM-SNDZ
     Indication: Adverse drug reaction

REACTIONS (1)
  - Pyrexia [None]
